APPROVED DRUG PRODUCT: PACLITAXEL
Active Ingredient: PACLITAXEL
Strength: 100MG/VIAL
Dosage Form/Route: POWDER;INTRAVENOUS
Application: A212700 | Product #001 | TE Code: AB
Applicant: JIANGSU HENGRUI PHARMACEUTICALS CO LTD
Approved: Oct 8, 2024 | RLD: No | RS: No | Type: RX